FAERS Safety Report 8916247 (Version 2)
Quarter: 2012Q4

REPORT INFORMATION
  Report Type: 
  Country: FR (occurrence: FR)
  Receive Date: 20121120
  Receipt Date: 20121127
  Transmission Date: 20130627
  Serious: Yes (Hospitalization, Other)
  Sender: FDA-Public Use
  Company Number: FR-ELI_LILLY_AND_COMPANY-FR201211002307

PATIENT
  Age: 63 None
  Sex: Male

DRUGS (14)
  1. ZYPREXA [Suspect]
     Indication: BIPOLAR DISORDER
     Dosage: 5 mg, bid
     Dates: start: 20101117
  2. ABILIFY [Concomitant]
     Dosage: UNK
     Dates: start: 20101215
  3. NOZINAN [Concomitant]
     Dosage: 25 mg, UNK
  4. PARACETAMOL [Concomitant]
     Dosage: 1 g, tid
  5. CITALOPRAM [Concomitant]
     Dosage: 20 mg, UNK
  6. PSYLIA [Concomitant]
     Dosage: 1 DF, qd
  7. ALFUZOSIN [Concomitant]
     Dosage: 10 mg, qd
  8. LANSOPRAZOLE [Concomitant]
     Dosage: 15 mg, qd
  9. LEVOTHYROX [Concomitant]
     Dosage: 50 DF, qd
  10. TERALITHE [Concomitant]
     Dosage: 250 mg, qid
  11. ATARAX [Concomitant]
     Dosage: 25 mg, tid
  12. TEGRETOL [Concomitant]
     Dosage: 200 mg, qd
  13. DUROGESIC [Concomitant]
     Dosage: 25 mg, qd
  14. TRANXENE [Concomitant]
     Dosage: 20 mg, qid

REACTIONS (21)
  - Coma [Recovered/Resolved]
  - Confusional state [Recovered/Resolved]
  - Panic attack [Recovered/Resolved]
  - Agitation [Recovered/Resolved]
  - Dysarthria [Recovered/Resolved]
  - Cardiac murmur [Recovered/Resolved]
  - Dyspnoea [Recovered/Resolved]
  - Muscle spasms [Recovered/Resolved]
  - Pyrexia [Recovered/Resolved]
  - Fall [Recovered/Resolved]
  - Neuroleptic malignant syndrome [Recovered/Resolved]
  - Oxygen saturation decreased [Recovered/Resolved]
  - Incontinence [Recovered/Resolved]
  - Confusional state [Recovered/Resolved]
  - Hypothyroidism [Unknown]
  - Tremor [Recovered/Resolved]
  - Anxiety [Recovered/Resolved]
  - Blood pressure abnormal [Recovered/Resolved]
  - Heart rate increased [Recovered/Resolved]
  - Miosis [Recovered/Resolved]
  - Blood creatine phosphokinase increased [Unknown]
